FAERS Safety Report 10243870 (Version 1)
Quarter: 2014Q2

REPORT INFORMATION
  Report Type: Report from Study
  Country: US (occurrence: US)
  Receive Date: 20140618
  Receipt Date: 20140618
  Transmission Date: 20141212
  Serious: Yes (Hospitalization)
  Sender: FDA-Public Use
  Company Number: US-JNJFOC-20140608451

PATIENT
  Age: 73 Year
  Sex: Female
  Weight: 80.29 kg

DRUGS (10)
  1. REMICADE [Suspect]
     Indication: RHEUMATOID ARTHRITIS
     Route: 042
  2. REMICADE [Suspect]
     Indication: RHEUMATOID ARTHRITIS
     Route: 042
     Dates: start: 2011
  3. METHOTREXATE [Concomitant]
     Indication: ARTHRITIS
     Dosage: TOTAL DOSE: 15MG. 2.5 MG/6 TABLETS EVERY MONDAY. TAKING IT FROM 2 TO 3 YEARS
     Route: 048
  4. SE-TAN PLUS CAP SET [Concomitant]
     Indication: MINERAL SUPPLEMENTATION
     Dosage: ONCE DAILY AT NIGHT. TAKING IT FROM 2 TO 3 YEARS
     Route: 048
  5. OMEPRAZOLE [Concomitant]
     Indication: GASTRIC DISORDER
     Dosage: TAKING IT FROM 2 TO 3 YEARS
     Route: 048
  6. FOLIC ACID [Concomitant]
     Dosage: TAKING IT FROM 2 TO 3 YEARS
     Route: 048
  7. LEVOTHYROXINE [Concomitant]
     Indication: THYROID DISORDER
     Dosage: TAKING IT FROM 2 TO 3 YEARS
     Route: 048
  8. PRAVASTATIN [Concomitant]
     Indication: BLOOD CHOLESTEROL
     Dosage: AT NIGHT. TAKING IT FROM 2 TO 3 YEARS
     Route: 048
  9. DICLOFENAC [Concomitant]
     Indication: PAIN
     Dosage: TAKING IT FROM 2 TO 3 YEARS
     Route: 048
  10. TRAMADOL [Concomitant]
     Indication: PAIN
     Dosage: TAKING IT FROM 2 TO 3 YEARS.
     Route: 048

REACTIONS (4)
  - Arthritis [Not Recovered/Not Resolved]
  - Spinal compression fracture [Recovered/Resolved]
  - Abnormal loss of weight [Recovered/Resolved]
  - Drug ineffective [Recovered/Resolved]
